FAERS Safety Report 10090592 (Version 2)
Quarter: 2014Q2

REPORT INFORMATION
  Report Type: Spontaneous
  Country: US (occurrence: None)
  Receive Date: 20140417
  Receipt Date: 20140605
  Transmission Date: 20141212
  Serious: Yes (Hospitalization, Other)
  Sender: FDA-Public Use
  Company Number: UTC-047093

PATIENT
  Age: 81 Year
  Sex: Female
  Weight: 77.1 kg

DRUGS (1)
  1. TYVASO  (TREPROSTINIL SODIUM (INHALED)) INHALATION GAS, .6MG/ML [Suspect]
     Indication: COR PULMONALE CHRONIC
     Route: 055
     Dates: start: 20140327

REACTIONS (3)
  - Gastrointestinal viral infection [None]
  - Bacteraemia [None]
  - Pneumonia [None]
